FAERS Safety Report 9028955 (Version 2)
Quarter: 2013Q1

REPORT INFORMATION
  Report Type: Spontaneous
  Country: DE (occurrence: DE)
  Receive Date: 20130124
  Receipt Date: 20130220
  Transmission Date: 20140127
  Serious: Yes (Hospitalization)
  Sender: FDA-Public Use
  Company Number: DE-B.I. PHARMACEUTICALS,INC./RIDGEFIELD-2013-DE-00145DE

PATIENT
  Age: 61 Year
  Sex: Male
  Weight: 97 kg

DRUGS (2)
  1. SIFROL [Suspect]
     Indication: PARKINSON^S DISEASE
     Dosage: 1.05 MG
     Dates: start: 2012
  2. PRADAXA [Concomitant]

REACTIONS (3)
  - Cerebrovascular accident [Unknown]
  - Dizziness postural [Not Recovered/Not Resolved]
  - Tinnitus [Not Recovered/Not Resolved]
